FAERS Safety Report 6020486-9 (Version None)
Quarter: 2008Q4

REPORT INFORMATION
  Report Type: 
  Country: None (occurrence: None)
  Receive Date: 20081226
  Receipt Date: 20081218
  Transmission Date: 20090506
  Serious: Yes (Hospitalization)
  Sender: FDA-Public Use
  Company Number: US-ABBOTT-07P-163-0371919-01

PATIENT
  Sex: Male
  Weight: 72.5 kg

DRUGS (40)
  1. HUMIRA [Suspect]
     Indication: RHEUMATOID ARTHRITIS
     Route: 058
     Dates: start: 20010213, end: 20070516
  2. HUMIRA [Suspect]
     Route: 058
     Dates: start: 20070702, end: 20080110
  3. HYDROCHLOROTHIAZIDE [Concomitant]
     Indication: HYPERTENSION
     Route: 048
     Dates: start: 20030903
  4. AFRIN [Concomitant]
     Indication: SINUSITIS
     Dosage: 2 SPRAY
     Route: 045
     Dates: start: 20050907, end: 20080205
  5. NASACORT [Concomitant]
     Indication: SINUSITIS
     Dosage: 2 SPRAY
     Route: 045
     Dates: start: 20050907, end: 20080205
  6. IRON [Concomitant]
     Indication: MINERAL SUPPLEMENTATION
     Route: 048
     Dates: start: 19950101
  7. CALCIUM [Concomitant]
     Indication: MINERAL SUPPLEMENTATION
     Route: 048
     Dates: start: 19950101
  8. ASCORBIC ACID [Concomitant]
     Indication: VITAMIN SUPPLEMENTATION
     Route: 048
     Dates: start: 19950101
  9. MULTI-VITAMIN [Concomitant]
     Indication: VITAMIN SUPPLEMENTATION
     Route: 048
     Dates: start: 19950101
  10. SILDENAFIL CITRATE [Concomitant]
     Indication: ERECTILE DYSFUNCTION
     Route: 048
     Dates: start: 20000301
  11. CELLUVISC [Concomitant]
     Indication: DRY EYE
     Route: 061
     Dates: start: 20010105
  12. FEXOFENADINE [Concomitant]
     Indication: NASAL CONGESTION
     Route: 048
     Dates: start: 20000101
  13. VITAMIN E [Concomitant]
     Indication: VITAMIN SUPPLEMENTATION
     Route: 048
     Dates: start: 20030101, end: 20070612
  14. VITAMIN B1 TAB [Concomitant]
     Indication: VITAMIN SUPPLEMENTATION
     Route: 048
     Dates: start: 20030101, end: 20070612
  15. VITAMIN B-12 [Concomitant]
     Indication: VITAMIN SUPPLEMENTATION
     Route: 048
     Dates: start: 20030101, end: 20070612
  16. NIACIN [Concomitant]
     Indication: MEDICAL DIET
     Route: 048
     Dates: start: 20030101, end: 20070612
  17. VITAMIN B6 [Concomitant]
     Indication: VITAMIN SUPPLEMENTATION
     Route: 048
     Dates: start: 20030101, end: 20070612
  18. VITAMIN B12 (CYANOCOBALAMIN AND ANALOGUES) [Concomitant]
     Indication: VITAMIN SUPPLEMENTATION
     Route: 048
     Dates: start: 20030101, end: 20070612
  19. BIOTIN [Concomitant]
     Indication: MEDICAL DIET
     Route: 048
     Dates: start: 20030101, end: 20070612
  20. PANDOTHEMIC ACID [Concomitant]
     Indication: MEDICAL DIET
     Route: 048
     Dates: start: 20030101, end: 20070612
  21. FOLIC ACID [Concomitant]
     Indication: VITAMIN SUPPLEMENTATION
     Route: 048
     Dates: start: 19910101, end: 20070612
  22. TRIAMCINOLENE CREAM 0.1% [Concomitant]
     Indication: RASH
     Route: 061
     Dates: start: 20030213, end: 20040308
  23. PREVACID [Concomitant]
     Indication: ABDOMINAL PAIN UPPER
     Route: 048
     Dates: start: 20061129, end: 20080525
  24. PREVACID [Concomitant]
     Indication: PAIN PROPHYLAXIS
  25. CELEBREX [Concomitant]
     Indication: RHEUMATOID ARTHRITIS
     Route: 048
     Dates: start: 20050305
  26. CELEBREX [Concomitant]
     Indication: SUPPLEMENTATION THERAPY
     Route: 048
     Dates: start: 20070616
  27. PREDNISONE TAB [Concomitant]
     Indication: RHEUMATOID ARTHRITIS
     Route: 048
     Dates: start: 20051010
  28. PREDNISONE TAB [Concomitant]
     Route: 048
     Dates: start: 19881020, end: 20051009
  29. CHONDROITIN W/GLUCOSAMINE [Concomitant]
     Indication: RHEUMATOID ARTHRITIS
     Route: 048
     Dates: start: 19970101
  30. CHONDROITIN W/GLUCOSAMINE [Concomitant]
     Indication: SUPPLEMENTATION THERAPY
     Route: 048
     Dates: start: 20070616
  31. METHOTREXATE [Concomitant]
     Indication: RHEUMATOID ARTHRITIS
     Route: 048
     Dates: start: 19910208
  32. METHOTREXATE [Concomitant]
     Indication: SUPPLEMENTATION THERAPY
     Route: 048
     Dates: start: 20070616
  33. EYE DROPS [Concomitant]
     Indication: RETINAL DETACHMENT
     Route: 047
     Dates: start: 20070505, end: 20070509
  34. MAXITROL [Concomitant]
     Indication: RETINAL DETACHMENT
     Route: 047
     Dates: start: 20070502, end: 20070516
  35. REQUIP [Concomitant]
     Indication: RESTLESS LEGS SYNDROME
     Route: 048
     Dates: start: 20061004, end: 20061005
  36. REQUIP [Concomitant]
     Route: 048
     Dates: start: 20061006, end: 20061011
  37. REQUIP [Concomitant]
     Route: 048
     Dates: start: 20061012
  38. NEOSPORIN SOLUTION [Concomitant]
     Indication: RETINAL DETACHMENT
     Route: 047
     Dates: start: 20070502, end: 20070502
  39. ANCEF [Concomitant]
     Indication: RETINAL DETACHMENT
     Dates: start: 20070502, end: 20070502
  40. SOLU-MEDROL [Concomitant]
     Indication: RETINAL DETACHMENT
     Dates: start: 20070502, end: 20070502

REACTIONS (1)
  - OSTEOLYSIS [None]
